FAERS Safety Report 9119722 (Version 2)
Quarter: 2013Q1

REPORT INFORMATION
  Report Type: Spontaneous
  Country: GB (occurrence: GB)
  Receive Date: 20130226
  Receipt Date: 20130315
  Transmission Date: 20140127
  Serious: Yes (Other)
  Sender: FDA-Public Use
  Company Number: GB-009507513-1302GBR010206

PATIENT
  Age: 6 Month
  Sex: Male
  Weight: 7.34 kg

DRUGS (1)
  1. BCG LIVE [Suspect]
     Indication: PROPHYLAXIS
     Dosage: 0.5 UNK, UNK
     Route: 023

REACTIONS (2)
  - Lymphadenitis [Not Recovered/Not Resolved]
  - Wrong technique in drug usage process [Unknown]
